FAERS Safety Report 11398988 (Version 1)
Quarter: 2015Q3

REPORT INFORMATION
  Report Type: Spontaneous
  Country: US (occurrence: US)
  Receive Date: 20150820
  Receipt Date: 20150820
  Transmission Date: 20151125
  Serious: No
  Sender: FDA-Public Use
  Company Number: US-TEVA-587642ACC

PATIENT
  Sex: Female

DRUGS (1)
  1. PARAGARD T 380A [Suspect]
     Active Substance: COPPER
     Indication: MENSTRUAL CYCLE MANAGEMENT
     Route: 015

REACTIONS (2)
  - Product use issue [Unknown]
  - Abnormal behaviour [Not Recovered/Not Resolved]
